FAERS Safety Report 12948515 (Version 1)
Quarter: 2016Q4

REPORT INFORMATION
  Report Type: Spontaneous
  Country: IT (occurrence: IT)
  Receive Date: 20161117
  Receipt Date: 20161117
  Transmission Date: 20170207
  Serious: Yes (Hospitalization)
  Sender: FDA-Public Use
  Company Number: IT-SUN PHARMACEUTICAL INDUSTRIES LTD-2016RR-127597

PATIENT
  Age: 76 Year
  Sex: Female

DRUGS (7)
  1. OMEPRAZEN [Concomitant]
     Active Substance: OMEPRAZOLE
     Indication: PRODUCT USED FOR UNKNOWN INDICATION
     Route: 065
  2. NORVASC [Concomitant]
     Active Substance: AMLODIPINE BESYLATE
     Indication: PRODUCT USED FOR UNKNOWN INDICATION
     Route: 065
  3. OLANZAPINE. [Suspect]
     Active Substance: OLANZAPINE
     Indication: ANTIDEPRESSANT THERAPY
     Dosage: 10 MG DAILY
     Route: 048
     Dates: start: 20150101, end: 20160305
  4. DEPAKIN 100 MG [Suspect]
     Active Substance: VALPROATE SODIUM
     Indication: ANTIDEPRESSANT THERAPY
     Dosage: 300 MG DAILY
     Route: 048
     Dates: start: 20150101, end: 20160305
  5. XELEVIA [Concomitant]
     Active Substance: SITAGLIPTIN PHOSPHATE
     Indication: PRODUCT USED FOR UNKNOWN INDICATION
     Route: 065
  6. TRIATEC [Concomitant]
     Active Substance: RAMIPRIL
     Indication: PRODUCT USED FOR UNKNOWN INDICATION
     Route: 065
  7. INSULIN [Concomitant]
     Active Substance: INSULIN NOS
     Indication: PRODUCT USED FOR UNKNOWN INDICATION
     Dosage: 5 DF
     Route: 065

REACTIONS (7)
  - Sensorimotor disorder [Unknown]
  - Condition aggravated [None]
  - Confusional state [Unknown]
  - Asthenia [Unknown]
  - Psychomotor retardation [None]
  - Psychiatric symptom [None]
  - Overdose [None]

NARRATIVE: CASE EVENT DATE: 20160305
